FAERS Safety Report 13793241 (Version 1)
Quarter: 2017Q3

REPORT INFORMATION
  Report Type: Spontaneous
  Country: US (occurrence: US)
  Receive Date: 20170726
  Receipt Date: 20170726
  Transmission Date: 20171127
  Serious: Yes (Disabling, Other)
  Sender: FDA-Public Use
  Company Number: None

PATIENT
  Age: 73 Year
  Sex: Male
  Weight: 82.56 kg

DRUGS (6)
  1. SIMVASTATIN. [Suspect]
     Active Substance: SIMVASTATIN
  2. ROSUVASTATIN. [Suspect]
     Active Substance: ROSUVASTATIN
  3. CENTRUM SILVER MULTIVITAMIN [Concomitant]
  4. LIPITOR [Suspect]
     Active Substance: ATORVASTATIN CALCIUM
     Indication: BLOOD CHOLESTEROL INCREASED
     Dosage: ?          QUANTITY:1 -PILL;?
     Route: 048
     Dates: start: 20010718, end: 20161216
  5. CRESTOR [Suspect]
     Active Substance: ROSUVASTATIN CALCIUM
  6. BAYER ASPIRIN [Concomitant]
     Active Substance: ASPIRIN

REACTIONS (4)
  - Pain [None]
  - Muscle spasms [None]
  - Asthenia [None]
  - Pain in extremity [None]

NARRATIVE: CASE EVENT DATE: 20010718
